FAERS Safety Report 11664956 (Version 1)
Quarter: 2015Q4

REPORT INFORMATION
  Report Type: Spontaneous
  Country: None (occurrence: None)
  Receive Date: 20151026
  Receipt Date: 20151026
  Transmission Date: 20160304
  Serious: No
  Sender: FDA-Public Use
  Company Number: None

PATIENT
  Age: 31 Year
  Sex: Female
  Weight: 28.58 kg

DRUGS (6)
  1. HERBA EQUISETI TEA [Concomitant]
  2. CLEXANE 4000 IU AXA [Suspect]
     Active Substance: ENOXAPARIN SODIUM
     Indication: ABORTION MISSED
     Dosage: GIVEN INTO/UNDER THE SKIN
     Route: 042
     Dates: start: 20150829, end: 20151024
  3. METFORMIN [Concomitant]
     Active Substance: METFORMIN HYDROCHLORIDE
  4. MENOPACE VITAMIN COMPLEX [Concomitant]
  5. FENNEL SEEDS [Concomitant]
  6. CLEXANE 4000 IU AXA [Suspect]
     Active Substance: ENOXAPARIN SODIUM
     Indication: PROPHYLAXIS
     Dosage: GIVEN INTO/UNDER THE SKIN
     Route: 042
     Dates: start: 20150829, end: 20151024

REACTIONS (4)
  - Maternal drugs affecting foetus [None]
  - Maternal exposure during pregnancy [None]
  - Hydrops foetalis [None]
  - Cystic lymphangioma [None]

NARRATIVE: CASE EVENT DATE: 20151016
